FAERS Safety Report 8962257 (Version 2)
Quarter: 2012Q4

REPORT INFORMATION
  Report Type: 
  Country: US (occurrence: US)
  Receive Date: 20121211
  Receipt Date: 20121227
  Transmission Date: 20130627
  Serious: Yes (Other)
  Sender: FDA-Public Use
  Company Number: US-MERCK-1212USA002519

PATIENT
  Sex: Female

DRUGS (2)
  1. PEG-INTRON [Suspect]
     Indication: HEPATITIS C
     Dosage: Vial
     Dates: start: 20010101, end: 20010114
  2. RIBAVIRIN [Suspect]
     Indication: HEPATITIS C
     Dosage: UNK
     Dates: start: 20010101, end: 20010114

REACTIONS (13)
  - Suicide attempt [Unknown]
  - Hallucination [Unknown]
  - Suicidal ideation [Unknown]
  - Hallucination [Unknown]
  - Skin disorder [Unknown]
  - Anger [Unknown]
  - Memory impairment [Unknown]
  - Memory impairment [Not Recovered/Not Resolved]
  - Dry mouth [Unknown]
  - Irritability [Unknown]
  - Visual acuity reduced [Unknown]
  - Weight decreased [Unknown]
  - Decreased appetite [Not Recovered/Not Resolved]
